FAERS Safety Report 5385316-7 (Version None)
Quarter: 2007Q3

REPORT INFORMATION
  Report Type: 
  Country: None (occurrence: None)
  Receive Date: 20070712
  Receipt Date: 20070702
  Transmission Date: 20080115
  Serious: Yes (Other)
  Sender: FDA-Public Use
  Company Number: EC-JNJFOC-20070700932

PATIENT

DRUGS (7)
  1. REMICADE [Suspect]
     Route: 042
  2. REMICADE [Suspect]
     Route: 042
  3. REMICADE [Suspect]
     Indication: SPONDYLOARTHROPATHY
     Route: 042
  4. METHOTRAXATE [Concomitant]
     Indication: SPONDYLOARTHROPATHY
  5. FOLIC ACID [Concomitant]
  6. PREDNISONE [Concomitant]
  7. ARAVA [Concomitant]

REACTIONS (1)
  - PULMONARY TUBERCULOSIS [None]
